FAERS Safety Report 7513501-4 (Version None)
Quarter: 2011Q2

REPORT INFORMATION
  Report Type: 
  Country: None (occurrence: None)
  Receive Date: 20110531
  Receipt Date: 20110519
  Transmission Date: 20111010
  Serious: Yes (Hospitalization)
  Sender: FDA-Public Use
  Company Number: US-ASTRAZENECA-2011SE11935

PATIENT
  Age: 80 Year
  Sex: Female

DRUGS (2)
  1. PROTONIX [Concomitant]
  2. NEXIUM [Suspect]
     Route: 048

REACTIONS (7)
  - ARTERIAL REPAIR [None]
  - ILL-DEFINED DISORDER [None]
  - LOWER RESPIRATORY TRACT INFECTION [None]
  - COLONOSCOPY [None]
  - LUNG DISORDER [None]
  - CHRONIC OBSTRUCTIVE PULMONARY DISEASE [None]
  - DRUG DOSE OMISSION [None]
